FAERS Safety Report 9820854 (Version 1)
Quarter: 2013Q4

REPORT INFORMATION
  Report Type: Spontaneous
  Country: US (occurrence: None)
  Receive Date: 20131028
  Receipt Date: 20131028
  Transmission Date: 20140711
  Serious: Yes (Other)
  Sender: FDA-Public Use
  Company Number: 2013US001485

PATIENT
  Age: 60 Year
  Sex: Female
  Weight: 83 kg

DRUGS (3)
  1. ICLUSIG [Suspect]
     Indication: CHRONIC MYELOID LEUKAEMIA
     Dates: start: 20130402, end: 20130410
  2. OXYCODONE (OXYCODONE) [Concomitant]
  3. FLEXERIL (CYCLOBENZAPRINE HYDROCHLORIDE) [Concomitant]

REACTIONS (9)
  - Chest discomfort [None]
  - Tinnitus [None]
  - Hepatic enzyme increased [None]
  - Headache [None]
  - Bone pain [None]
  - Nausea [None]
  - Abdominal pain upper [None]
  - Rash generalised [None]
  - Constipation [None]
